FAERS Safety Report 12435332 (Version 1)
Quarter: 2016Q2

REPORT INFORMATION
  Report Type: Spontaneous
  Country: US (occurrence: US)
  Receive Date: 20160603
  Receipt Date: 20160603
  Transmission Date: 20160815
  Serious: No
  Sender: FDA-Public Use
  Company Number: US-ROCHE-1714298

PATIENT
  Sex: Female

DRUGS (3)
  1. ACTEMRA [Suspect]
     Active Substance: TOCILIZUMAB
     Indication: SJOGREN^S SYNDROME
     Route: 042
  2. ACTEMRA [Suspect]
     Active Substance: TOCILIZUMAB
     Indication: DRY EYE
  3. ACTEMRA [Suspect]
     Active Substance: TOCILIZUMAB
     Indication: RHEUMATOID ARTHRITIS

REACTIONS (9)
  - Sinusitis [Unknown]
  - Blepharitis [Unknown]
  - Eye pain [Unknown]
  - Facial pain [Unknown]
  - Drug effect decreased [Unknown]
  - Pyrexia [Unknown]
  - Rhinalgia [Unknown]
  - Nasopharyngitis [Unknown]
  - Hot flush [Unknown]
